FAERS Safety Report 5623842-3 (Version None)
Quarter: 2008Q1

REPORT INFORMATION
  Report Type: 
  Country: None (occurrence: None)
  Receive Date: 20080207
  Receipt Date: 20080204
  Transmission Date: 20080703
  Serious: Yes (Hospitalization)
  Sender: FDA-Public Use
  Company Number: SPV1-2008-00070

PATIENT
  Age: 79 Year
  Sex: Male

DRUGS (10)
  1. FOSRENOL [Suspect]
     Indication: HYPERPHOSPHATAEMIA
     Dosage: 500 MG, 2X/DAY, BID;
     Dates: start: 20071011, end: 20071127
  2. ROCALTROL [Concomitant]
  3. CARNITENE /00718102/ (CARNITINE HYDROCHLORIDE) [Concomitant]
  4. CARVEDILOL [Concomitant]
  5. TERAPROST (TERAZOSIN HYDROCHLORIDE) [Concomitant]
  6. OLPRESS (OLMESARTAN MEDOXOMIL) [Concomitant]
  7. NORVASC /00972401/ (AMLODIPINE) [Concomitant]
  8. ZAROXOLYN [Concomitant]
  9. LASIX [Concomitant]
  10. ASPIRINETT (ACETYLSALICYLIC ACID) [Concomitant]

REACTIONS (7)
  - DRUG ADMINISTRATION ERROR [None]
  - HAEMODIALYSIS [None]
  - INTESTINAL OBSTRUCTION [None]
  - PERITONITIS BACTERIAL [None]
  - PSEUDOMONAS INFECTION [None]
  - WRONG TECHNIQUE IN DRUG USAGE PROCESS [None]
  - X-RAY ABNORMAL [None]
